FAERS Safety Report 16665126 (Version 2)
Quarter: 2020Q2

REPORT INFORMATION
  Report Type: Spontaneous
  Country: DK (occurrence: DK)
  Receive Date: 20190803
  Receipt Date: 20200520
  Transmission Date: 20200713
  Serious: Yes (Life-Threatening, Hospitalization)
  Sender: FDA-Public Use
  Company Number: DK-ACCORD-149929

PATIENT
  Age: 32 Year
  Sex: Male

DRUGS (3)
  1. QUETIAPINE ACCORD [Suspect]
     Active Substance: QUETIAPINE
     Indication: BIPOLAR DISORDER
     Dosage: STRENGTH: 500 MG, LAST DOSE RECEIVED ON 18-JUL-2019
     Route: 048
     Dates: start: 2014
  2. LEPONEX [Suspect]
     Active Substance: CLOZAPINE
     Indication: SCHIZOPHRENIA
     Dosage: 100 MG, STARTED AT 25 MG AND INCREASED TO 100MG
     Route: 048
     Dates: start: 20190705, end: 20190715
  3. LITAREX [LITHIUM] [Suspect]
     Active Substance: LITHIUM
     Indication: AFFECTIVE DISORDER
     Dosage: STRENGTH: 6 MMOL LI +
     Route: 048
     Dates: start: 201603, end: 20190718

REACTIONS (7)
  - Syncope [Unknown]
  - Dizziness [Unknown]
  - Myocarditis [Recovering/Resolving]
  - Electrocardiogram ST segment elevation [Unknown]
  - Troponin increased [Unknown]
  - Chest discomfort [Unknown]
  - Atrioventricular block second degree [Unknown]

NARRATIVE: CASE EVENT DATE: 20190715
